FAERS Safety Report 6396835-9 (Version None)
Quarter: 2009Q4

REPORT INFORMATION
  Report Type: 
  Country: None (occurrence: None)
  Receive Date: 20091012
  Receipt Date: 20090706
  Transmission Date: 20100525
  Serious: No
  Sender: FDA-Public Use
  Company Number: US-ASTRAZENECA-2009UW18688

PATIENT
  Age: 1059 Month
  Sex: Female
  Weight: 66.7 kg

DRUGS (2)
  1. SYMBICORT [Suspect]
     Indication: DYSPNOEA
     Dosage: 2 PUFFS
     Route: 055
     Dates: start: 20070101
  2. AMLODIPINE [Concomitant]

REACTIONS (3)
  - HEART RATE INCREASED [None]
  - NASOPHARYNGITIS [None]
  - PRODUCTIVE COUGH [None]
